FAERS Safety Report 9780315 (Version 1)
Quarter: 2013Q4

REPORT INFORMATION
  Report Type: Spontaneous
  Country: RU (occurrence: RU)
  Receive Date: 20131224
  Receipt Date: 20131224
  Transmission Date: 20140711
  Serious: Yes (Death)
  Sender: FDA-Public Use
  Company Number: PHHY2013RU149332

PATIENT
  Age: 77 Year
  Sex: Male

DRUGS (1)
  1. GLIVEC [Suspect]
     Route: 048

REACTIONS (1)
  - Death [Fatal]
